FAERS Safety Report 9099984 (Version 1)
Quarter: 2013Q1

REPORT INFORMATION
  Report Type: Spontaneous
  Country: AU (occurrence: AU)
  Receive Date: 20130215
  Receipt Date: 20130215
  Transmission Date: 20140127
  Serious: Yes (Hospitalization)
  Sender: FDA-Public Use
  Company Number: AU-009507513-1302AUS004762

PATIENT
  Age: 69 Year
  Sex: Female
  Weight: 56 kg

DRUGS (6)
  1. JANUMET 50 MG/1000 MG [Suspect]
     Dosage: 2 DOSE UNSPECIFIED, DAILY
     Dates: start: 20111215
  2. CARTIA (ASPIRIN) [Concomitant]
  3. DOTHEP [Concomitant]
  4. FEMARA [Concomitant]
  5. LIPOSTAT [Concomitant]
  6. METFORMIN HYDROCHLORIDE [Concomitant]

REACTIONS (2)
  - Faeces pale [Not Recovered/Not Resolved]
  - Colitis [Not Recovered/Not Resolved]
